FAERS Safety Report 6273866-0 (Version None)
Quarter: 2009Q3

REPORT INFORMATION
  Report Type: 
  Country: None (occurrence: None)
  Receive Date: 20090716
  Receipt Date: 20090707
  Transmission Date: 20100115
  Serious: Yes (Other)
  Sender: FDA-Public Use
  Company Number: 2009US002675

PATIENT
  Age: 15 Year
  Sex: Male

DRUGS (2)
  1. AMBISOME [Suspect]
     Indication: BRAIN ABSCESS
     Dosage: 250 MG, UID/QD, IV NOS
     Route: 042
     Dates: start: 20090609, end: 20090622
  2. FUNGUARD(MICAFUNGIN) INJECTION [Suspect]
     Indication: DRUG USE FOR UNKNOWN INDICATION
     Dosage: 150 MG, UID/QD, IV NOS
     Route: 042
     Dates: start: 20090609, end: 20090622

REACTIONS (2)
  - BLOOD CREATINE PHOSPHOKINASE INCREASED [None]
  - HYPOKALAEMIA [None]
